FAERS Safety Report 4955359-3 (Version None)
Quarter: 2006Q1

REPORT INFORMATION
  Report Type: 
  Country: None (occurrence: None)
  Receive Date: 20060322
  Receipt Date: 20060313
  Transmission Date: 20060701
  Serious: Yes (Other)
  Sender: FDA-Public Use
  Company Number: 2006-DE-01347GD

PATIENT
  Age: 59 Year
  Sex: Female

DRUGS (4)
  1. MORPHINE [Suspect]
     Indication: BACK PAIN
     Dosage: 4 MG, IV
     Route: 042
  2. MS CONTIN [Suspect]
     Indication: BACK PAIN
     Dosage: 60 MG (DAY 1-7), 30 MG QD (DAY 27-99), 30 MG BID (FROM DAY 100), PO
     Route: 048
  3. BENADRYL [Concomitant]
  4. PERCOCET [Concomitant]

REACTIONS (14)
  - AGITATION [None]
  - ARTHRALGIA [None]
  - BACK PAIN [None]
  - BLOOD PRESSURE SYSTOLIC INCREASED [None]
  - BLOOD THYROID STIMULATING HORMONE DECREASED [None]
  - CRYING [None]
  - FALL [None]
  - HYPOTHYROIDISM [None]
  - HYPOVENTILATION [None]
  - LETHARGY [None]
  - RESPIRATORY DEPRESSION [None]
  - SCREAMING [None]
  - THYROXINE DECREASED [None]
  - TRI-IODOTHYRONINE DECREASED [None]
